FAERS Safety Report 18200092 (Version 1)
Quarter: 2020Q3

REPORT INFORMATION
  Report Type: Spontaneous
  Country: FR (occurrence: FR)
  Receive Date: 20200827
  Receipt Date: 20200827
  Transmission Date: 20201103
  Serious: Yes (Hospitalization)
  Sender: FDA-Public Use
  Company Number: FR-PFIZER INC-2020330661

PATIENT
  Age: 33 Year
  Sex: Female

DRUGS (1)
  1. METHOTREXATE SODIUM. [Suspect]
     Active Substance: METHOTREXATE SODIUM
     Indication: CROHN^S DISEASE
     Dosage: UNK
     Dates: start: 201910, end: 201912

REACTIONS (4)
  - Hyperthermia [Recovered/Resolved]
  - Product use in unapproved indication [Recovered/Resolved]
  - Off label use [Recovered/Resolved]
  - Meningitis aseptic [Recovered/Resolved]

NARRATIVE: CASE EVENT DATE: 201910
